FAERS Safety Report 6105551-X (Version None)
Quarter: 2009Q1

REPORT INFORMATION
  Report Type: 
  Country: None (occurrence: None)
  Receive Date: 20090225
  Receipt Date: 20090225
  Transmission Date: 20090719
  Serious: Yes (Other)
  Sender: FDA-Public Use
  Company Number: None

PATIENT
  Age: 64 Year
  Sex: Male
  Weight: 69.4 kg

DRUGS (1)
  1. NEOCITRAN EXTRA STRENGTH, SORE THROAT + COUGH (NCH)(ACETAMINOPHEN (PAR [Suspect]
     Indication: NASOPHARYNGITIS
     Dosage: 1 DF, ONCE/SINGLE, ORAL
     Route: 048
     Dates: start: 20090216, end: 20090216

REACTIONS (1)
  - SYNCOPE [None]
